FAERS Safety Report 20525940 (Version 1)
Quarter: 2022Q1

REPORT INFORMATION
  Report Type: Spontaneous
  Country: US (occurrence: None)
  Receive Date: 20220225
  Receipt Date: 20220225
  Transmission Date: 20220423
  Serious: Yes (Hospitalization, Disabling)
  Sender: FDA-Public Use
  Company Number: None

PATIENT
  Age: 49 Year
  Sex: Female
  Weight: 81 kg

DRUGS (3)
  1. SUMATRIPTAN [Suspect]
     Active Substance: SUMATRIPTAN
     Indication: Migraine
     Dosage: OTHER QUANTITY : 1 TABLET(S);?OTHER FREQUENCY : EVERY 2 HOURS;?
     Route: 048
     Dates: start: 20211001
  2. PROZAC [Concomitant]
     Active Substance: FLUOXETINE HYDROCHLORIDE
  3. TRAZODONE [Concomitant]
     Active Substance: TRAZODONE HYDROCHLORIDE

REACTIONS (8)
  - Hypoaesthesia [None]
  - Swollen tongue [None]
  - Muscle spasms [None]
  - Pain in extremity [None]
  - Chest discomfort [None]
  - Blood pressure increased [None]
  - Feeling of body temperature change [None]
  - Dizziness [None]

NARRATIVE: CASE EVENT DATE: 20220204
